FAERS Safety Report 14249914 (Version 1)
Quarter: 2017Q4

REPORT INFORMATION
  Report Type: Spontaneous
  Country: US (occurrence: US)
  Receive Date: 20171205
  Receipt Date: 20171205
  Transmission Date: 20180321
  Serious: Yes (Life-Threatening, Hospitalization, Other)
  Sender: FDA-Public Use
  Company Number: US-ALVOGEN-2017-ALVOGEN-094194

PATIENT
  Sex: Female
  Weight: 3 kg

DRUGS (3)
  1. FLECAINIDE [Suspect]
     Active Substance: FLECAINIDE
     Indication: JUNCTIONAL ECTOPIC TACHYCARDIA
     Route: 064
  2. DEXAMETHASONE. [Concomitant]
     Active Substance: DEXAMETHASONE
     Indication: MATERNAL THERAPY TO ENHANCE FOETAL LUNG MATURITY
     Dosage: ()
     Route: 064
  3. DIGOXIN. [Concomitant]
     Active Substance: DIGOXIN
     Indication: JUNCTIONAL ECTOPIC TACHYCARDIA
     Dosage: ()
     Route: 064

REACTIONS (8)
  - Electrocardiogram QT prolonged [Unknown]
  - Hypotension [Unknown]
  - Atrioventricular dissociation [Unknown]
  - Foetal exposure during pregnancy [Unknown]
  - Pulmonary hypertension [Unknown]
  - Conduction disorder [Unknown]
  - Tachycardia foetal [Unknown]
  - Atrioventricular block first degree [Unknown]
